FAERS Safety Report 13122364 (Version 2)
Quarter: 2017Q1

REPORT INFORMATION
  Report Type: Report from Study
  Country: US (occurrence: US)
  Receive Date: 20170117
  Receipt Date: 20170207
  Transmission Date: 20170428
  Serious: Yes (Death, Other)
  Sender: FDA-Public Use
  Company Number: US-009507513-1701USA005520

PATIENT
  Age: 74 Year
  Sex: Female
  Weight: 36.74 kg

DRUGS (2)
  1. DEXAMETHASONE. [Suspect]
     Active Substance: DEXAMETHASONE
     Indication: PLASMA CELL MYELOMA
     Dosage: 20 MG, CYCLICAL (D1, D4, D8, D11, Q21DAYS)
     Route: 048
     Dates: start: 20140418, end: 20141114
  2. VELCADE [Suspect]
     Active Substance: BORTEZOMIB
     Indication: PLASMA CELL MYELOMA
     Dosage: 1.3 MG/M2, CYCLICAL (D1, D4 Q7DAYS, 1 WEEK OFF Q14D)
     Route: 058
     Dates: start: 20140418, end: 20141114

REACTIONS (1)
  - Plasma cell myeloma [Fatal]

NARRATIVE: CASE EVENT DATE: 20141129
